FAERS Safety Report 4961830-0 (Version None)
Quarter: 2006Q2

REPORT INFORMATION
  Report Type: 
  Country: None (occurrence: None)
  Receive Date: 20060404
  Receipt Date: 20060330
  Transmission Date: 20061013
  Serious: Yes (Hospitalization)
  Sender: FDA-Public Use
  Company Number: FR-GLAXOSMITHKLINE-B0418401A

PATIENT
  Age: 76 Year
  Sex: Male

DRUGS (6)
  1. ZELITREX [Suspect]
     Indication: HERPES ZOSTER
     Dosage: 1G PER DAY
     Route: 048
     Dates: start: 20060218, end: 20060223
  2. SEPTIVON [Concomitant]
     Indication: HERPES ZOSTER
     Dates: start: 20060218
  3. PRIMPERAN TAB [Concomitant]
     Route: 048
  4. SUCRALFATE [Concomitant]
     Route: 048
  5. SOLUPRED [Concomitant]
     Route: 048
  6. NEORAL [Concomitant]
     Route: 048

REACTIONS (2)
  - DISTURBANCE IN ATTENTION [None]
  - HALLUCINATION [None]
